FAERS Safety Report 25293665 (Version 2)
Quarter: 2025Q3

REPORT INFORMATION
  Report Type: Spontaneous
  Country: US (occurrence: US)
  Receive Date: 20250510
  Receipt Date: 20250709
  Transmission Date: 20251021
  Serious: No
  Sender: SANOFI AVENTIS
  Company Number: US-SA-2025SA124563

PATIENT
  Age: 48 Year
  Sex: Female

DRUGS (2)
  1. DUPIXENT [Suspect]
     Active Substance: DUPILUMAB
     Indication: Dermatitis atopic
     Route: 058
     Dates: start: 20250130, end: 20250130
  2. DUPIXENT [Suspect]
     Active Substance: DUPILUMAB
     Indication: Eczema
     Dosage: 300 MG, QOW
     Route: 058
     Dates: start: 20250213

REACTIONS (10)
  - Periorbital swelling [Not Recovered/Not Resolved]
  - Condition aggravated [Not Recovered/Not Resolved]
  - Pruritus [Unknown]
  - Contusion [Unknown]
  - Scratch [Unknown]
  - Oral herpes [Not Recovered/Not Resolved]
  - Ocular hyperaemia [Unknown]
  - Eye pruritus [Unknown]
  - Vision blurred [Unknown]
  - Eczema [Unknown]

NARRATIVE: CASE EVENT DATE: 20250101
